FAERS Safety Report 7751928-6 (Version None)
Quarter: 2011Q3

REPORT INFORMATION
  Report Type: 
  Country: None (occurrence: None)
  Receive Date: 20110912
  Receipt Date: 20110830
  Transmission Date: 20111222
  Serious: Yes (Hospitalization, Other)
  Sender: FDA-Public Use
  Company Number: CIP11000511

PATIENT
  Sex: Female
  Weight: 71.2 kg

DRUGS (5)
  1. ACTONEL [Suspect]
     Dosage: 35 MG, ORAL
     Route: 048
     Dates: start: 20081112, end: 20080101
  2. FOSAMAX [Suspect]
     Indication: OSTEOPOROSIS
     Dosage: 10 MG DAILY, ORAL
     Route: 048
  3. FOSAMAX [Suspect]
     Indication: OSTEOPOROSIS
     Dosage: 70 MG ONCE WEEKLY, ORAL
     Route: 048
     Dates: start: 20060403, end: 20080115
  4. ALENDRONATE SODIUM [Suspect]
     Dosage: 70 MG, ORAL
     Route: 048
     Dates: start: 20080209, end: 20081107
  5. ALENDRONATE SODIUM [Suspect]
     Dosage: ORAL
     Route: 048
     Dates: start: 20081206

REACTIONS (9)
  - PAIN IN EXTREMITY [None]
  - STRESS FRACTURE [None]
  - ARTHRALGIA [None]
  - FALL [None]
  - HAEMORRHAGIC ANAEMIA [None]
  - IMMOBILE [None]
  - DYSSTASIA [None]
  - MUSCULAR WEAKNESS [None]
  - FEMUR FRACTURE [None]
